FAERS Safety Report 4619812-4 (Version None)
Quarter: 2005Q1

REPORT INFORMATION
  Report Type: 
  Country: None (occurrence: None)
  Receive Date: 20050321
  Receipt Date: 20050321
  Transmission Date: 20050727
  Serious: Yes (Death)
  Sender: FDA-Public Use
  Company Number: None

PATIENT
  Age: 48 Year
  Sex: Female

DRUGS (7)
  1. ROXANOL [Suspect]
     Indication: PAIN
     Dosage: 20 MG PO X 1
     Route: 048
     Dates: start: 20050207
  2. ATENOLOL [Concomitant]
  3. FUROSEMIDE [Concomitant]
  4. SPIRONOLACTONE [Concomitant]
  5. LORAZEPAM [Concomitant]
  6. FENTANYL [Concomitant]
  7. APAP TAB [Concomitant]

REACTIONS (2)
  - PRESCRIBED OVERDOSE [None]
  - RESPIRATORY FAILURE [None]
